FAERS Safety Report 7386669-0 (Version None)
Quarter: 2011Q1

REPORT INFORMATION
  Report Type: 
  Country: None (occurrence: None)
  Receive Date: 20110323
  Receipt Date: 20110311
  Transmission Date: 20110831
  Serious: Yes (Other)
  Sender: FDA-Public Use
  Company Number: AUR-APL-2011-00898

PATIENT
  Age: 37 Year
  Sex: Female

DRUGS (5)
  1. LAMOTRIGINE [Suspect]
     Indication: FRONTAL LOBE EPILEPSY
     Dosage: 500MG, DAILY
  2. RUFINAMIDE [Suspect]
     Indication: FRONTAL LOBE EPILEPSY
     Dosage: 1000MG, DAILY
  3. CLONAZEPAM [Suspect]
     Indication: FRONTAL LOBE EPILEPSY
     Dosage: 2 MG, DAILY
  4. PHENYTOIN [Suspect]
     Indication: FRONTAL LOBE EPILEPSY
     Dosage: 375MG, DAILY
  5. LACOSAMIDE [Suspect]
     Indication: FRONTAL LOBE EPILEPSY
     Dosage: 200 MG, DAILY

REACTIONS (6)
  - DIPLOPIA [None]
  - DRUG LEVEL INCREASED [None]
  - DIZZINESS [None]
  - BALANCE DISORDER [None]
  - NEUROTOXICITY [None]
  - DRUG INTERACTION [None]
